FAERS Safety Report 23831079 (Version 1)
Quarter: 2024Q2

REPORT INFORMATION
  Report Type: Other
  Country: US (occurrence: US)
  Receive Date: 20240508
  Receipt Date: 20240508
  Transmission Date: 20240715
  Serious: Yes (Hospitalization)
  Sender: FDA-Public Use
  Company Number: US-B.Braun Medical Inc.-2156708

PATIENT
  Age: 60 Year
  Sex: Female

DRUGS (5)
  1. DEXTROSE [Suspect]
     Active Substance: DEXTROSE\DEXTROSE MONOHYDRATE
     Indication: Hypoglycaemia
     Route: 042
  2. LISINOPRIL [Concomitant]
     Active Substance: LISINOPRIL
  3. Tejocote [Concomitant]
  4. PIOGLITAZONE [Concomitant]
     Active Substance: PIOGLITAZONE
  5. METFORMIN [Concomitant]
     Active Substance: METFORMIN HYDROCHLORIDE

REACTIONS (1)
  - Drug ineffective [Unknown]
